FAERS Safety Report 17207817 (Version 3)
Quarter: 2020Q1

REPORT INFORMATION
  Report Type: Spontaneous
  Country: CN (occurrence: CN)
  Receive Date: 20191227
  Receipt Date: 20200103
  Transmission Date: 20200409
  Serious: Yes (Life-Threatening, Other)
  Sender: FDA-Public Use
  Company Number: CN-PFIZER INC-2019550982

PATIENT
  Age: 41 Year
  Sex: Male

DRUGS (4)
  1. VORICONAZOLE. [Suspect]
     Active Substance: VORICONAZOLE
     Indication: ANTI-INFECTIVE THERAPY
     Dosage: 400 MG, 1X/DAY
     Route: 042
     Dates: start: 20141224, end: 20150107
  2. VORICONAZOLE. [Suspect]
     Active Substance: VORICONAZOLE
     Indication: ANTI-INFECTIVE THERAPY
     Dosage: 200 MG, 2X/DAY
     Route: 048
     Dates: start: 2015
  3. VORICONAZOLE. [Suspect]
     Active Substance: VORICONAZOLE
     Indication: ANTIFUNGAL TREATMENT
  4. VORICONAZOLE. [Suspect]
     Active Substance: VORICONAZOLE
     Dosage: 200 MG, UNK (ONCE EVERY OTHER DAY)
     Dates: start: 2015

REACTIONS (8)
  - Asthenia [Unknown]
  - Decreased appetite [Unknown]
  - Myalgia [Recovered/Resolved]
  - Myopathy [Recovered/Resolved]
  - Myocardial necrosis marker increased [Recovered/Resolved]
  - Malaise [Recovered/Resolved]
  - Rhabdomyolysis [Unknown]
  - Mobility decreased [Unknown]

NARRATIVE: CASE EVENT DATE: 2015
